FAERS Safety Report 18274306 (Version 1)
Quarter: 2020Q3

REPORT INFORMATION
  Report Type: Spontaneous
  Country: GB (occurrence: GB)
  Receive Date: 20200916
  Receipt Date: 20200916
  Transmission Date: 20201103
  Serious: Yes (Other)
  Sender: FDA-Public Use
  Company Number: GB-JNJFOC-20200914476

PATIENT
  Age: 39 Year
  Sex: Female
  Weight: 54.42 kg

DRUGS (1)
  1. XARELTO [Suspect]
     Active Substance: RIVAROXABAN
     Indication: CARDIAC ABLATION
     Dosage: 30 MG, UNK
     Route: 048
     Dates: start: 20200629

REACTIONS (6)
  - Back pain [Recovering/Resolving]
  - Spinal pain [Unknown]
  - Neck pain [Recovering/Resolving]
  - Muscle tightness [Unknown]
  - Muscle spasms [Recovering/Resolving]
  - Arthralgia [Unknown]
